FAERS Safety Report 8695046 (Version 3)
Quarter: 2013Q1

REPORT INFORMATION
  Report Type: Report from Study
  Country: JP (occurrence: JP)
  Receive Date: 20120731
  Receipt Date: 20130212
  Transmission Date: 20140127
  Serious: Yes (Other)
  Sender: FDA-Public Use
  Company Number: JP-009507513-2012SP031031

PATIENT
  Age: 69 Year
  Sex: Male
  Weight: 54 kg

DRUGS (12)
  1. PEGINTRON [Suspect]
     Indication: CHRONIC HEPATITIS C
     Dosage: 1.5 MICROGRAM PER KILOGRAM, QW
     Route: 058
     Dates: start: 20120403, end: 20120920
  2. REBETOL [Suspect]
     Indication: CHRONIC HEPATITIS C
     Dosage: 600 MG, QD
     Route: 048
     Dates: start: 20120403, end: 20120416
  3. REBETOL [Suspect]
     Dosage: 400 MG, QD
     Route: 048
     Dates: start: 20120417, end: 20120501
  4. REBETOL [Suspect]
     Dosage: 200 MG, QD
     Route: 048
     Dates: start: 20120501, end: 20120517
  5. REBETOL [Suspect]
     Dosage: 200 MG, QD
     Route: 048
     Dates: end: 20120530
  6. REBETOL [Suspect]
     Dosage: 400 MG, QD
     Route: 048
     Dates: start: 20120531, end: 20120801
  7. REBETOL [Suspect]
     Dosage: 600MG,QD
     Route: 048
     Dates: start: 20120802, end: 20120920
  8. TELAVIC [Suspect]
     Indication: CHRONIC HEPATITIS C
     Dosage: 2250 MG, QD
     Route: 048
     Dates: start: 20120403, end: 20120516
  9. TELAVIC [Suspect]
     Dosage: 2250 MG, QD
     Route: 048
     Dates: start: 20120531, end: 20120626
  10. FLUITRAN [Concomitant]
     Indication: HYPERTENSION
     Dosage: 1MG,QD, FORMULATION: POR
     Route: 048
  11. OLMETEC [Concomitant]
     Indication: HYPERTENSION
     Dosage: 10 MG, QD,FORMULATION: POR
     Route: 048
  12. LOXOPROFEN [Concomitant]
     Indication: PROPHYLAXIS
     Dosage: 60 MG, QD AS NEEDED; FORMULATION: POR
     Route: 048
     Dates: start: 20120403, end: 20120920

REACTIONS (3)
  - Rash [Not Recovered/Not Resolved]
  - Rash [Not Recovered/Not Resolved]
  - Rash [Recovered/Resolved]
